FAERS Safety Report 9462480 (Version 1)
Quarter: 2013Q3

REPORT INFORMATION
  Report Type: Spontaneous
  Country: US (occurrence: None)
  Receive Date: 20130815
  Receipt Date: 20130815
  Transmission Date: 20140515
  Serious: Yes (Life-Threatening, Hospitalization)
  Sender: FDA-Public Use
  Company Number: None

PATIENT
  Age: 61 Year
  Sex: Male
  Weight: 86.4 kg

DRUGS (6)
  1. LISINOPRIL 10MG [Suspect]
     Route: 048
     Dates: start: 20130810
  2. CARVEDILOL [Suspect]
     Route: 048
     Dates: start: 20130810
  3. ACTOS [Concomitant]
  4. DILTIAZEM [Concomitant]
  5. ALBUTEROL [Concomitant]
  6. SYMBICORT [Concomitant]

REACTIONS (5)
  - Dyspnoea [None]
  - Pharyngeal oedema [None]
  - Swelling face [None]
  - Cardio-respiratory arrest [None]
  - Endotracheal intubation complication [None]
